FAERS Safety Report 14294164 (Version 2)
Quarter: 2018Q1

REPORT INFORMATION
  Report Type: Spontaneous
  Country: GB (occurrence: GB)
  Receive Date: 20171217
  Receipt Date: 20180209
  Transmission Date: 20180509
  Serious: Yes (Hospitalization, Disabling, Other)
  Sender: FDA-Public Use
  Company Number: GB-ASTRAZENECA-2017SF27331

PATIENT
  Age: 61 Year
  Sex: Male
  Weight: 130.1 kg

DRUGS (12)
  1. ALLOPURINOL. [Concomitant]
     Active Substance: ALLOPURINOL
     Indication: GOUT
     Dosage: 1 DF DAILY AFTER FOOD
  2. ASPIRIN. [Concomitant]
     Active Substance: ASPIRIN
  3. INSULATARD INNOLET [Concomitant]
     Active Substance: INSULIN HUMAN
     Dosage: 100UNITS/ML
     Route: 058
  4. PIOGLITAZONE. [Concomitant]
     Active Substance: PIOGLITAZONE
  5. OMACOR [Concomitant]
     Active Substance: OMEGA-3-ACID ETHYL ESTERS
     Indication: BLOOD CHOLESTEROL ABNORMAL
  6. GLICLAZIDE [Concomitant]
     Active Substance: GLICLAZIDE
     Dosage: 1 DF DAILY WITH BREAKFAST
  7. SIMVASTATIN. [Concomitant]
     Active Substance: SIMVASTATIN
     Indication: BLOOD CHOLESTEROL ABNORMAL
  8. ACARBOSE. [Concomitant]
     Active Substance: ACARBOSE
     Dosage: 1 DF DAILY WITH FIRST MEAL
  9. LISINOPRIL. [Concomitant]
     Active Substance: LISINOPRIL
  10. NOVORAPID [Concomitant]
     Active Substance: INSULIN ASPART
     Dosage: IMMEDIATELY BEFORE MEALS OR WHEN NECESSARY SHORTLY AFTER MEALS ACCORDING TO REQUIREMENTS
     Route: 058
  11. FORXIGA [Suspect]
     Active Substance: DAPAGLIFLOZIN
     Indication: TYPE 2 DIABETES MELLITUS
     Route: 048
     Dates: start: 20141119, end: 20170605
  12. METFORMIN [Concomitant]
     Active Substance: METFORMIN HYDROCHLORIDE
     Dosage: 2 DF TWICE A DAY WITH MAIN MEALS

REACTIONS (2)
  - Necrotising fasciitis [Unknown]
  - Perineal abscess [Unknown]

NARRATIVE: CASE EVENT DATE: 20170427
